FAERS Safety Report 4948179-7 (Version None)
Quarter: 2006Q1

REPORT INFORMATION
  Report Type: 
  Country: None (occurrence: None)
  Receive Date: 20060127
  Receipt Date: 20050223
  Transmission Date: 20060701
  Serious: Yes (Hospitalization, Other)
  Sender: FDA-Public Use
  Company Number: 05-02-0278

PATIENT
  Age: 57 Year
  Sex: Male

DRUGS (1)
  1. CLOZAPINE [Suspect]
     Indication: AFFECTIVE DISORDER
     Dosage: ORAL
     Route: 048
     Dates: start: 20020301

REACTIONS (1)
  - CONVULSION [None]
